FAERS Safety Report 6583857-8 (Version None)
Quarter: 2010Q1

REPORT INFORMATION
  Report Type: 
  Country: None (occurrence: None)
  Receive Date: 20100213
  Receipt Date: 20100213
  Transmission Date: 20100710
  Serious: Yes (Hospitalization)
  Sender: FDA-Public Use
  Company Number: None

PATIENT
  Age: 19 Year
  Sex: Female
  Weight: 35 kg

DRUGS (2)
  1. VANCOMYCIN [Suspect]
     Indication: OSTEOMYELITIS
     Dosage: 1 GRAM EVERY 12 HOURS IV
     Route: 042
     Dates: start: 20100205, end: 20100208
  2. IV CONTRAST -GADOLINIUM PER UNKNOWN UNKNOWN [Suspect]
     Indication: COMPUTERISED TOMOGRAM
     Dosage: 1 DOSE IV
     Route: 042
     Dates: start: 20100204, end: 20100204

REACTIONS (1)
  - BLOOD CREATININE INCREASED [None]
